FAERS Safety Report 14060938 (Version 1)
Quarter: 2017Q4

REPORT INFORMATION
  Report Type: Spontaneous
  Country: FR (occurrence: FR)
  Receive Date: 20171007
  Receipt Date: 20171007
  Transmission Date: 20180321
  Serious: Yes (Hospitalization, Other)
  Sender: FDA-Public Use
  Company Number: FR-AUROBINDO-AUR-APL-2015-04063

PATIENT
  Age: 86 Year
  Sex: Female

DRUGS (4)
  1. PARACETAMOL 1G [Suspect]
     Active Substance: ACETAMINOPHEN
     Indication: CUSHING^S SYNDROME
     Dosage: 1 G, 3 TIMES A DAY
     Route: 048
  2. OCTREOTIDE. [Concomitant]
     Active Substance: OCTREOTIDE
     Indication: CUSHING^S SYNDROME
     Dosage: UNK
     Route: 065
  3. OCTREOTIDE. [Concomitant]
     Active Substance: OCTREOTIDE
     Indication: NEUROENDOCRINE TUMOUR
  4. METYRAPONE [Interacting]
     Active Substance: METYRAPONE
     Indication: NEUROENDOCRINE TUMOUR
     Dosage: 4 G, DAILY
     Route: 065

REACTIONS (8)
  - Drug interaction [Unknown]
  - Asthenia [Recovered/Resolved]
  - Metabolic acidosis [Recovered/Resolved]
  - Tachypnoea [Recovered/Resolved]
  - Toxicity to various agents [Recovered/Resolved]
  - Anion gap increased [Recovered/Resolved]
  - Blood bicarbonate abnormal [Recovered/Resolved]
  - Condition aggravated [Recovered/Resolved]
